FAERS Safety Report 9206740 (Version 2)
Quarter: 2013Q4

REPORT INFORMATION
  Report Type: Spontaneous
  Country: US (occurrence: US)
  Receive Date: 20130403
  Receipt Date: 20131017
  Transmission Date: 20140711
  Serious: Yes (Hospitalization, Other)
  Sender: FDA-Public Use
  Company Number: US-BAYER-2013-041324

PATIENT
  Age: 32 Year
  Sex: Female

DRUGS (4)
  1. YASMIN [Suspect]
     Dosage: UNK
     Dates: start: 200709, end: 200808
  2. YAZ [Suspect]
     Dosage: UNK
     Dates: start: 201003, end: 201007
  3. DIFLUCAN [Concomitant]
  4. WELLBUTRIN [Concomitant]

REACTIONS (8)
  - Gallbladder disorder [None]
  - Cholelithiasis [None]
  - General physical health deterioration [None]
  - Injury [None]
  - Pain [None]
  - Emotional distress [None]
  - Anxiety [None]
  - Pain [None]
